FAERS Safety Report 15530335 (Version 1)
Quarter: 2018Q4

REPORT INFORMATION
  Report Type: Spontaneous
  Country: IN (occurrence: IN)
  Receive Date: 20181020
  Receipt Date: 20181020
  Transmission Date: 20190205
  Serious: Yes (Other)
  Sender: FDA-Public Use
  Company Number: IN-TORRENT-00001901

PATIENT
  Age: 63 Year
  Sex: Female

DRUGS (3)
  1. CYPROHEPTADINE. [Interacting]
     Active Substance: CYPROHEPTADINE
     Indication: DECREASED APPETITE
     Dosage: UNKNOWN
  2. SERTRALINE [Suspect]
     Active Substance: SERTRALINE HYDROCHLORIDE
     Indication: DEPRESSIVE SYMPTOM
     Dosage: UNKNOWN
  3. LORAZEPAM. [Concomitant]
     Active Substance: LORAZEPAM
     Indication: PRODUCT USED FOR UNKNOWN INDICATION
     Dosage: AT NIGHT IF NEEDED

REACTIONS (3)
  - Withdrawal syndrome [Unknown]
  - Serotonin syndrome [Recovered/Resolved]
  - Drug interaction [Unknown]
